FAERS Safety Report 6148337-2 (Version None)
Quarter: 2009Q2

REPORT INFORMATION
  Report Type: 
  Country: None (occurrence: None)
  Receive Date: 20090406
  Receipt Date: 20090330
  Transmission Date: 20091009
  Serious: Yes (Other)
  Sender: FDA-Public Use
  Company Number: TRP_06031_2009

PATIENT
  Sex: Female

DRUGS (2)
  1. RIBASPHERE [Suspect]
     Indication: HEPATITIS C
     Dosage: (600 MG BID)
     Dates: start: 20080310, end: 20090201
  2. PEGASYS [Suspect]
     Indication: HEPATITIS C
     Dosage: (180 ?G 1X/WEEK)
     Dates: start: 20080310, end: 20090201

REACTIONS (34)
  - ACTIVITIES OF DAILY LIVING IMPAIRED [None]
  - ALOPECIA [None]
  - AMNESIA [None]
  - ANAEMIA [None]
  - ARTHRALGIA [None]
  - BONE PAIN [None]
  - CHILLS [None]
  - CONDITION AGGRAVATED [None]
  - CONFUSIONAL STATE [None]
  - COUGH [None]
  - DEPRESSION [None]
  - DIARRHOEA [None]
  - DISTURBANCE IN ATTENTION [None]
  - FATIGUE [None]
  - GASTROENTERITIS VIRAL [None]
  - GINGIVAL DISORDER [None]
  - HEADACHE [None]
  - HERNIA [None]
  - HYPERSENSITIVITY [None]
  - MENTAL IMPAIRMENT [None]
  - MUSCULAR WEAKNESS [None]
  - MYALGIA [None]
  - NAUSEA [None]
  - NEUTROPHIL COUNT ABNORMAL [None]
  - OSTEOARTHRITIS [None]
  - PAIN [None]
  - PHOBIA [None]
  - PYREXIA [None]
  - RASH GENERALISED [None]
  - SOMNOLENCE [None]
  - SPEECH DISORDER [None]
  - THINKING ABNORMAL [None]
  - TOOTHACHE [None]
  - WHITE BLOOD CELL COUNT DECREASED [None]
